FAERS Safety Report 7332752-5 (Version None)
Quarter: 2011Q1

REPORT INFORMATION
  Report Type: 
  Country: None (occurrence: None)
  Receive Date: 20110304
  Receipt Date: 20110223
  Transmission Date: 20110831
  Serious: Yes (Hospitalization)
  Sender: FDA-Public Use
  Company Number: KR-ASTRAZENECA-2011SE10243

PATIENT
  Age: 31 Year
  Sex: Male

DRUGS (2)
  1. SALINE [Concomitant]
     Dosage: 1.5 ML
  2. LIDOCAINE [Suspect]
     Indication: ANALGESIC THERAPY

REACTIONS (1)
  - MYOSITIS OSSIFICANS [None]
